FAERS Safety Report 23930824 (Version 1)
Quarter: 2024Q2

REPORT INFORMATION
  Report Type: Spontaneous
  Country: PL (occurrence: PL)
  Receive Date: 20240603
  Receipt Date: 20240603
  Transmission Date: 20240716
  Serious: Yes (Other)
  Sender: FDA-Public Use
  Company Number: PL-SANDOZ-SDZ2024PL051593

PATIENT
  Age: 65 Year
  Sex: Female

DRUGS (4)
  1. MYCOPHENOLATE MOFETIL [Suspect]
     Active Substance: MYCOPHENOLATE MOFETIL
     Indication: Erythema elevatum diutinum
     Dosage: 4 GRAM, ONCE A DAY (4 G/DAY FOR 3 MONTHS)
     Route: 065
  2. CYCLOSPORINE [Suspect]
     Active Substance: CYCLOSPORINE
     Indication: Erythema elevatum diutinum
     Dosage: 200 MILLIGRAM, ONCE A DAY (200 MG/DAY FOR 6 MONTHS)
     Route: 065
  3. METHOTREXATE [Suspect]
     Active Substance: METHOTREXATE
     Indication: Erythema elevatum diutinum
     Dosage: 20 MILLIGRAM, EVERY WEEK (20 MG/WEEK FOR 7 MONTHS)
     Route: 065
  4. DAPSONE [Suspect]
     Active Substance: DAPSONE
     Indication: Erythema elevatum diutinum
     Dosage: 100 MILLIGRAM, ONCE A DAY (100 MG/DAY FOR 4 MONTHS)
     Route: 065

REACTIONS (3)
  - Disease progression [Unknown]
  - Erythema elevatum diutinum [Unknown]
  - Drug ineffective [Unknown]
